FAERS Safety Report 9507428 (Version 1)
Quarter: 2013Q1

REPORT INFORMATION
  Report Type: Spontaneous
  Country: US (occurrence: None)
  Receive Date: 20130305
  Receipt Date: 20130305
  Transmission Date: 20140127
  Serious: Yes (Other)
  Sender: FDA-Public Use
  Company Number: 163-21880-11120688

PATIENT
  Age: 70 Year
  Sex: Male

DRUGS (2)
  1. REVLIMID [Suspect]
     Indication: PLASMA CELL MYELOMA
     Dosage: 10 MG, 1 IN 1 D, PO
     Route: 048
     Dates: start: 20111028, end: 20111128
  2. ZOMETA (ZOLEDRONIC ACID) [Concomitant]

REACTIONS (3)
  - Blood creatinine increased [None]
  - Platelet count decreased [None]
  - Haemoglobin decreased [None]
